FAERS Safety Report 5383628-4 (Version None)
Quarter: 2007Q3

REPORT INFORMATION
  Report Type: 
  Country: None (occurrence: None)
  Receive Date: 20070706
  Receipt Date: 20070622
  Transmission Date: 20080115
  Serious: No
  Sender: FDA-Public Use
  Company Number: 2007BI009974

PATIENT
  Age: 68 Year
  Sex: Female

DRUGS (9)
  1. NATALIZUMAB [Suspect]
     Indication: MULTIPLE SCLEROSIS
     Dosage: 300 MG;QM; IV
     Route: 042
     Dates: start: 20070202, end: 20070330
  2. GLYBURIDE [Concomitant]
  3. HYDROCHLOROTHIAZIDE [Concomitant]
  4. INDERAL [Concomitant]
  5. AMITRIPTYLINE HCL [Concomitant]
  6. K-LYTE [Concomitant]
  7. NEURONTIN [Concomitant]
  8. VITAMIN B-12 [Concomitant]
  9. LISINOPRIL [Concomitant]

REACTIONS (3)
  - ANTIBODY TEST POSITIVE [None]
  - HYPERSENSITIVITY [None]
  - LOSS OF CONSCIOUSNESS [None]
